FAERS Safety Report 4750387-5 (Version None)
Quarter: 2005Q3

REPORT INFORMATION
  Report Type: 
  Country: None (occurrence: None)
  Receive Date: 20050818
  Receipt Date: 20050805
  Transmission Date: 20060218
  Serious: Yes (Hospitalization)
  Sender: FDA-Public Use
  Company Number: 215903

PATIENT
  Age: 73 Year
  Sex: Male

DRUGS (3)
  1. METALYSE (TENECTEPLASE) PWDR + SOLVENT, INJECTION SOLN, 50MG [Suspect]
     Indication: MYOCARDIAL INFARCTION
     Dosage: 6 ML, INTRAVENOUS
     Route: 042
     Dates: start: 20050411, end: 20050411
  2. ASPIRINE (ASPIRIN) [Concomitant]
  3. HEPARIN SODIUM [Concomitant]

REACTIONS (2)
  - HAEMATOMA [None]
  - RED BLOOD CELL COUNT DECREASED [None]
